FAERS Safety Report 5753142-2 (Version None)
Quarter: 2008Q2

REPORT INFORMATION
  Report Type: 
  Country: None (occurrence: None)
  Receive Date: 20080530
  Receipt Date: 20080520
  Transmission Date: 20081010
  Serious: Yes (Hospitalization)
  Sender: FDA-Public Use
  Company Number: JP-JNJFOC-20080406901

PATIENT
  Sex: Male

DRUGS (11)
  1. LEVOFLOXACIN [Suspect]
     Indication: UPPER RESPIRATORY TRACT INFLAMMATION
     Route: 048
  2. DASEN [Concomitant]
     Indication: UPPER RESPIRATORY TRACT INFLAMMATION
     Route: 048
  3. PELEX [Concomitant]
     Indication: UPPER RESPIRATORY TRACT INFLAMMATION
     Route: 048
  4. RENIVACE [Concomitant]
     Indication: HYPERTENSION
     Route: 048
  5. BUFFERIN [Concomitant]
     Indication: CEREBRAL INFARCTION
     Route: 048
  6. CYANOCOBALAMIN [Concomitant]
     Indication: CEREBRAL INFARCTION
     Route: 048
  7. MAGNESIUM OXIDE [Concomitant]
     Route: 048
  8. FAMOTIDINE [Concomitant]
     Indication: DUODENAL ULCER
     Route: 048
  9. SOLON [Concomitant]
     Indication: DUODENAL ULCER
     Route: 048
  10. MUCOSAL-L [Concomitant]
     Indication: UPPER RESPIRATORY TRACT INFLAMMATION
     Route: 048
  11. ZYRTEC [Concomitant]
     Indication: UPPER RESPIRATORY TRACT INFLAMMATION
     Route: 048

REACTIONS (1)
  - INTERSTITIAL LUNG DISEASE [None]
